FAERS Safety Report 7215118-8 (Version None)
Quarter: 2011Q1

REPORT INFORMATION
  Report Type: 
  Country: None (occurrence: None)
  Receive Date: 20110107
  Receipt Date: 20101005
  Transmission Date: 20110831
  Serious: No
  Sender: FDA-Public Use
  Company Number: A0878118A

PATIENT
  Age: 72 Year
  Sex: Female
  Weight: 83.6 kg

DRUGS (17)
  1. MAGNESIUM [Concomitant]
     Dosage: 250MG PER DAY
  2. GENERIC COLACE [Concomitant]
     Dosage: 100MG TWICE PER DAY
  3. ASPIRIN [Concomitant]
  4. AVAPRO [Concomitant]
     Dosage: 150MG PER DAY
  5. ZOCOR [Concomitant]
     Dosage: .5TAB TWICE PER DAY
  6. HYDROCHLOROTHIAZIDE [Concomitant]
     Dosage: 12.5MG PER DAY
  7. FUROSEMIDE [Concomitant]
     Dosage: 40MG PER DAY
  8. ONGLYZA [Concomitant]
     Dosage: 2.5MG PER DAY
  9. HUMALOG [Concomitant]
     Route: 058
  10. ATENOLOL [Concomitant]
     Dosage: 50MG TWICE PER DAY
  11. FINALIN [Concomitant]
  12. UNKNOWN MEDICATION [Concomitant]
  13. TRAVATAN [Concomitant]
  14. LOVAZA [Suspect]
     Dosage: 2G TWICE PER DAY
     Route: 048
     Dates: start: 20100813, end: 20100822
  15. LUMIGAN [Concomitant]
  16. FORTEO [Concomitant]
     Dosage: 20MCG AT NIGHT
     Route: 058
  17. MULTI-VITAMIN [Concomitant]

REACTIONS (3)
  - DYSPNOEA [None]
  - BACK PAIN [None]
  - COUGH [None]
